FAERS Safety Report 8347908-2 (Version None)
Quarter: 2012Q2

REPORT INFORMATION
  Report Type: 
  Country: None (occurrence: None)
  Receive Date: 20120507
  Receipt Date: 20120424
  Transmission Date: 20120825
  Serious: Yes (Hospitalization, Other)
  Sender: FDA-Public Use
  Company Number: 2012-1944

PATIENT
  Age: 66 Year
  Sex: Female

DRUGS (4)
  1. SOMATULINE DEPOT [Suspect]
  2. SOMATULINE DEPOT [Suspect]
     Indication: NEUROENDOCRINE TUMOUR
     Dosage: 120 (120 MG, 1 IN 28 D), SUBCUTANEOUS
     Route: 058
     Dates: start: 20110624
  3. SOMATULINE DEPOT [Suspect]
  4. SOMATULINE DEPOT [Suspect]

REACTIONS (2)
  - NEOPLASM PROGRESSION [None]
  - NEUROENDOCRINE TUMOUR [None]
